FAERS Safety Report 16662187 (Version 1)
Quarter: 2019Q3

REPORT INFORMATION
  Report Type: Spontaneous
  Country: US (occurrence: US)
  Receive Date: 20190619
  Receipt Date: 20190619
  Transmission Date: 20191004
  Serious: Yes (Other)
  Sender: FDA-Public Use
  Company Number: None

PATIENT
  Age: 78 Year
  Sex: Female
  Weight: 81.65 kg

DRUGS (1)
  1. REPATHA [Suspect]
     Active Substance: EVOLOCUMAB
     Indication: BLOOD CHOLESTEROL INCREASED
     Dosage: ?          QUANTITY:140 MG MILLIGRAM(S);OTHER FREQUENCY:TWICE MONTHLY;OTHER ROUTE:INJECTION?
     Dates: start: 20190510, end: 20190510

REACTIONS (4)
  - Upper respiratory tract infection [None]
  - Candida infection [None]
  - Conjunctivitis [None]
  - Oropharyngeal pain [None]

NARRATIVE: CASE EVENT DATE: 20190510
